FAERS Safety Report 12080648 (Version 1)
Quarter: 2016Q1

REPORT INFORMATION
  Report Type: Spontaneous
  Country: TR (occurrence: TR)
  Receive Date: 20160216
  Receipt Date: 20160216
  Transmission Date: 20160526
  Serious: Yes (Other)
  Sender: FDA-Public Use
  Company Number: TR-MYLANLABS-2016M1005729

PATIENT

DRUGS (2)
  1. PREDNISONE. [Concomitant]
     Active Substance: PREDNISONE
     Indication: RHEUMATOID ARTHRITIS
     Dosage: 10 MG / DAY
     Route: 048
  2. METHOTREXATE [Suspect]
     Active Substance: METHOTREXATE
     Indication: RHEUMATOID ARTHRITIS
     Dosage: TAKING 20/MG/DAY FOR PAST 10 DAYS
     Route: 065

REACTIONS (4)
  - Accidental overdose [Recovered/Resolved]
  - Febrile neutropenia [Recovered/Resolved]
  - Inappropriate schedule of drug administration [Recovered/Resolved]
  - Mucosal inflammation [Recovered/Resolved]
